FAERS Safety Report 5399031-7 (Version None)
Quarter: 2007Q3

REPORT INFORMATION
  Report Type: 
  Country: None (occurrence: None)
  Receive Date: 20070723
  Receipt Date: 20070723
  Transmission Date: 20080115
  Serious: Yes (Other)
  Sender: FDA-Public Use
  Company Number: None

PATIENT
  Age: 42 Year
  Sex: Male
  Weight: 107.9561 kg

DRUGS (1)
  1. LEVAQUIN [Suspect]
     Indication: COUGH
     Dosage: 500MG DAILY PO
     Route: 048
     Dates: start: 20070705, end: 20070714

REACTIONS (3)
  - AFFECTIVE DISORDER [None]
  - ANGER [None]
  - SUICIDAL IDEATION [None]
